FAERS Safety Report 24065827 (Version 2)
Quarter: 2024Q3

REPORT INFORMATION
  Report Type: Spontaneous
  Country: US (occurrence: US)
  Receive Date: 20240709
  Receipt Date: 20240712
  Transmission Date: 20241016
  Serious: No
  Sender: MYLAN
  Company Number: US-MYLANLABS-2024M1062485

PATIENT
  Age: 55 Year
  Sex: Female
  Weight: 81.19 kg

DRUGS (1)
  1. ESTRADIOL TRANSDERMAL SYSTEM [Suspect]
     Active Substance: ESTRADIOL
     Indication: Hormone therapy
     Dosage: 0.1 MILLIGRAM, QD (PER DAY ONCE WEEKLY)
     Route: 062

REACTIONS (3)
  - Application site pruritus [Unknown]
  - Product adhesion issue [Unknown]
  - Product size issue [Unknown]

NARRATIVE: CASE EVENT DATE: 20240626
